FAERS Safety Report 19188627 (Version 2)
Quarter: 2021Q3

REPORT INFORMATION
  Report Type: Spontaneous
  Country: DE (occurrence: DE)
  Receive Date: 20210428
  Receipt Date: 20210805
  Transmission Date: 20211014
  Serious: Yes (Death, Life-Threatening, Hospitalization, Other)
  Sender: FDA-Public Use
  Company Number: DE-SA-2021SA137110

PATIENT
  Age: 75 Year
  Sex: Male
  Weight: 96.3 kg

DRUGS (7)
  1. TRIAMCINOLONE ACETONIDE. [Suspect]
     Active Substance: TRIAMCINOLONE ACETONIDE
     Indication: OSTEOARTHRITIS
     Dosage: 40 MG, SINGLE
     Route: 014
     Dates: start: 20210122, end: 20210122
  2. ALLOPURINOL. [Concomitant]
     Active Substance: ALLOPURINOL
     Indication: GOUT
     Dosage: UNK
     Route: 065
     Dates: start: 2015
  3. ABROCITINIB. [Suspect]
     Active Substance: ABROCITINIB
     Indication: DERMATITIS ATOPIC
     Dosage: UNK
     Route: 048
     Dates: start: 20190119, end: 20210129
  4. CANDESARTAN COMP. [Concomitant]
     Active Substance: CANDESARTAN CILEXETIL\HYDROCHLOROTHIAZIDE
     Indication: HYPERTENSION
     Dosage: UNK
     Route: 065
     Dates: start: 2004
  5. HYDROCHLOROTHIAZIDE. [Concomitant]
     Active Substance: HYDROCHLOROTHIAZIDE
     Indication: PRODUCT USED FOR UNKNOWN INDICATION
     Dosage: UNK
     Route: 065
     Dates: start: 2004
  6. METOPROLOL SUCCINATE. [Concomitant]
     Active Substance: METOPROLOL SUCCINATE
     Indication: HYPERTENSION
     Dosage: UNK
     Dates: start: 20200702
  7. IBUPROFEN. [Concomitant]
     Active Substance: IBUPROFEN
     Indication: ARTHRALGIA
     Dosage: 400 MILLIGRAM
     Route: 048
     Dates: start: 202007, end: 202101

REACTIONS (6)
  - Septic shock [Fatal]
  - Endocarditis [Unknown]
  - Septic arthritis staphylococcal [Unknown]
  - Gastric ulcer haemorrhage [Recovering/Resolving]
  - Multiple organ dysfunction syndrome [Unknown]
  - Disease progression [Fatal]
